FAERS Safety Report 24655755 (Version 2)
Quarter: 2024Q4

REPORT INFORMATION
  Report Type: Spontaneous
  Country: JP (occurrence: JP)
  Receive Date: 20241123
  Receipt Date: 20241127
  Transmission Date: 20250114
  Serious: No
  Sender: MERCK
  Company Number: JP-MSD-M2024-46846

PATIENT
  Age: 96 Year

DRUGS (1)
  1. LAGEVRIO [Suspect]
     Active Substance: MOLNUPIRAVIR
     Indication: COVID-19 treatment
     Dosage: 800 MILLIGRAM, BID
     Route: 048
     Dates: start: 20241111, end: 20241115

REACTIONS (3)
  - Wrong technique in product usage process [Unknown]
  - Product preparation error [Unknown]
  - Product use complaint [Unknown]

NARRATIVE: CASE EVENT DATE: 20241111
